FAERS Safety Report 25204612 (Version 2)
Quarter: 2025Q2

REPORT INFORMATION
  Report Type: Spontaneous
  Country: US (occurrence: US)
  Receive Date: 20250416
  Receipt Date: 20250423
  Transmission Date: 20250716
  Serious: No
  Sender: VERTEX
  Company Number: US-VERTEX PHARMACEUTICALS-2025-005722

PATIENT
  Age: 20 Year
  Sex: Female

DRUGS (3)
  1. JOURNAVX [Suspect]
     Active Substance: SUZETRIGINE
     Indication: Pain
     Route: 048
     Dates: start: 2025
  2. JOURNAVX [Suspect]
     Active Substance: SUZETRIGINE
     Indication: Arthralgia
  3. JOURNAVX [Suspect]
     Active Substance: SUZETRIGINE
     Indication: Arthralgia

REACTIONS (8)
  - Fatigue [Unknown]
  - Somnolence [Unknown]
  - Quality of life decreased [Unknown]
  - Off label use [Unknown]
  - Breast pain [Unknown]
  - Presyncope [Unknown]
  - Flushing [Unknown]
  - Nausea [Unknown]

NARRATIVE: CASE EVENT DATE: 20250101
